FAERS Safety Report 8882022 (Version 6)
Quarter: 2014Q1

REPORT INFORMATION
  Report Type: Spontaneous
  Country: US (occurrence: US)
  Receive Date: 20121102
  Receipt Date: 20140206
  Transmission Date: 20141002
  Serious: No
  Sender: FDA-Public Use
  Company Number: US-009507513-1210USA012621

PATIENT
  Sex: Male
  Weight: 67 kg

DRUGS (1)
  1. PROPECIA [Suspect]
     Indication: ALOPECIA
     Dosage: 1 MG, QD
     Route: 048
     Dates: start: 20080523

REACTIONS (10)
  - Cognitive disorder [Not Recovered/Not Resolved]
  - Blood triglycerides increased [Unknown]
  - Blood cholesterol increased [Unknown]
  - Organic erectile dysfunction [Unknown]
  - Flank pain [Unknown]
  - Back pain [Unknown]
  - Headache [Unknown]
  - Erectile dysfunction [Unknown]
  - Loss of libido [Unknown]
  - Sexual dysfunction [Not Recovered/Not Resolved]
